FAERS Safety Report 13148956 (Version 1)
Quarter: 2017Q1

REPORT INFORMATION
  Report Type: Spontaneous
  Country: US (occurrence: US)
  Receive Date: 20170124
  Receipt Date: 20170124
  Transmission Date: 20170428
  Serious: No
  Sender: FDA-Public Use
  Company Number: None

PATIENT
  Sex: Male

DRUGS (1)
  1. HUMIRA [Suspect]
     Active Substance: ADALIMUMAB
     Indication: CROHN^S DISEASE
     Dosage: 40MG QWK SQ
     Route: 058
     Dates: start: 20161013

REACTIONS (6)
  - Headache [None]
  - Arthralgia [None]
  - Tremor [None]
  - Back pain [None]
  - Musculoskeletal pain [None]
  - Urticaria [None]
